FAERS Safety Report 6752017-X (Version None)
Quarter: 2010Q2

REPORT INFORMATION
  Report Type: 
  Country: None (occurrence: None)
  Receive Date: 20100602
  Receipt Date: 20100518
  Transmission Date: 20101027
  Serious: Yes (Disabling)
  Sender: FDA-Public Use
  Company Number: CA-MERCK-0806CAN00058

PATIENT
  Age: 82 Year
  Sex: Female
  Weight: 53 kg

DRUGS (14)
  1. HYZAAR [Suspect]
     Indication: HYPERTENSION
     Route: 048
     Dates: start: 20060101
  2. [THERAPY UNSPECIFIED] [Concomitant]
     Route: 065
  3. ASCORBIC ACID [Concomitant]
     Route: 065
  4. CALCIUM (UNSPECIFIED) AND MAGNESIUM (UNSPECIFIED) AND VITAMIN D (UNSPE [Concomitant]
     Route: 065
  5. LEVOTHYROXINE SODIUM [Concomitant]
     Route: 065
  6. MINERALS (UNSPECIFIED) [Concomitant]
     Route: 065
  7. UBIDECARENONE [Concomitant]
     Route: 065
  8. ZINC (UNSPECIFIED) [Concomitant]
     Route: 065
  9. VITAMINS (UNSPECIFIED) [Concomitant]
     Route: 065
  10. PROBIOTICS (UNSPECIFIED) [Concomitant]
     Route: 065
  11. METFORMIN [Concomitant]
     Route: 065
  12. CETYL MYRISTOLEATE AND CETYLATED FATTY ACIDS [Concomitant]
     Indication: ARTHRITIS
     Route: 065
  13. CYANOCOBALAMIN AND PYRIDOXINE [Concomitant]
     Route: 065
  14. GARLIC [Concomitant]
     Route: 065

REACTIONS (2)
  - AGEUSIA [None]
  - ANOSMIA [None]
